FAERS Safety Report 6211625-5 (Version None)
Quarter: 2009Q2

REPORT INFORMATION
  Report Type: 
  Country: None (occurrence: None)
  Receive Date: 20090522
  Receipt Date: 20090330
  Transmission Date: 20091009
  Serious: No
  Sender: FDA-Public Use
  Company Number: 8044439

PATIENT
  Age: 49 Year
  Sex: Male
  Weight: 105.2 kg

DRUGS (4)
  1. CIMZIA [Suspect]
     Indication: CROHN'S DISEASE
     Dosage: 400 MG SC
     Route: 058
     Dates: start: 20090217
  2. ASACOL [Concomitant]
  3. MULTI-VITAMINS [Concomitant]
  4. LORTAB [Concomitant]

REACTIONS (5)
  - ARTHRALGIA [None]
  - CONSTIPATION [None]
  - DYSPNOEA [None]
  - NASOPHARYNGITIS [None]
  - PYREXIA [None]
